FAERS Safety Report 5455337-4 (Version None)
Quarter: 2007Q3

REPORT INFORMATION
  Report Type: 
  Country: None (occurrence: None)
  Receive Date: 20070918
  Receipt Date: 20070910
  Transmission Date: 20080115
  Serious: No
  Sender: FDA-Public Use
  Company Number: US-BAXTER-2007BH007615

PATIENT
  Sex: Female

DRUGS (1)
  1. OXYTOCIN [Suspect]
     Indication: LABOUR INDUCTION
     Dosage: DOSE UNIT:UNKNOWN
     Route: 042
     Dates: start: 20070809, end: 20070809

REACTIONS (2)
  - ACCIDENTAL OVERDOSE [None]
  - UTERINE HYPERTONUS [None]
